FAERS Safety Report 15463204 (Version 1)
Quarter: 2018Q4

REPORT INFORMATION
  Report Type: Spontaneous
  Country: US (occurrence: US)
  Receive Date: 20181004
  Receipt Date: 20181004
  Transmission Date: 20190204
  Serious: No
  Sender: FDA-Public Use
  Company Number: US-TEVA-2018-US-959886

PATIENT
  Sex: Female

DRUGS (1)
  1. OXAPROZIN. [Suspect]
     Active Substance: OXAPROZIN
     Indication: PAIN
     Route: 065
     Dates: start: 201808

REACTIONS (3)
  - Headache [Unknown]
  - Drug ineffective [Unknown]
  - Pain [Unknown]
